FAERS Safety Report 6845954-9 (Version None)
Quarter: 2010Q3

REPORT INFORMATION
  Report Type: 
  Country: None (occurrence: None)
  Receive Date: 20100715
  Receipt Date: 20070830
  Transmission Date: 20110219
  Serious: No
  Sender: FDA-Public Use
  Company Number: US-PFIZER INC-2007073650

PATIENT
  Sex: Female
  Weight: 68 kg

DRUGS (1)
  1. CHANTIX [Suspect]
     Indication: SMOKING CESSATION THERAPY
     Dates: start: 20070820

REACTIONS (6)
  - DIPLOPIA [None]
  - HEADACHE [None]
  - INCORRECT DOSE ADMINISTERED [None]
  - MYALGIA [None]
  - NAUSEA [None]
  - PAIN [None]
